FAERS Safety Report 7175894-X (Version None)
Quarter: 2010Q4

REPORT INFORMATION
  Report Type: 
  Country: None (occurrence: None)
  Receive Date: 20101220
  Receipt Date: 20100518
  Transmission Date: 20110411
  Serious: No
  Sender: FDA-Public Use
  Company Number: US-AMGEN-TCS401154

PATIENT

DRUGS (6)
  1. ENBREL [Suspect]
     Indication: PSORIATIC ARTHROPATHY
     Dosage: 50 MG, QWK
     Route: 058
     Dates: start: 20070801, end: 20100301
  2. ENBREL [Suspect]
     Indication: PSORIASIS
  3. LORAZEPAM [Suspect]
     Dosage: UNK UNK, UNK
     Dates: end: 20090201
  4. METHADONE [Suspect]
     Dosage: UNK UNK, UNK
     Dates: end: 20090201
  5. OMEPRAZOLE [Concomitant]
  6. ACETAMINOPHEN [Concomitant]

REACTIONS (6)
  - BONE PAIN [None]
  - LIVER FUNCTION TEST ABNORMAL [None]
  - MUSCULAR WEAKNESS [None]
  - MYOSITIS [None]
  - PARAESTHESIA [None]
  - PSORIASIS [None]
